FAERS Safety Report 8617248-2 (Version None)
Quarter: 2012Q3

REPORT INFORMATION
  Report Type: 
  Country: None (occurrence: None)
  Receive Date: 20120823
  Receipt Date: 20120813
  Transmission Date: 20120928
  Serious: No
  Sender: FDA-Public Use
  Company Number: US-ASTRAZENECA-2012SE56882

PATIENT
  Age: 51 Year
  Sex: Female
  Weight: 104.3 kg

DRUGS (3)
  1. OMEPRAZOLE [Suspect]
     Indication: GASTROOESOPHAGEAL REFLUX DISEASE
     Route: 048
     Dates: start: 20120601
  2. NEXIUM [Concomitant]
     Indication: HIATUS HERNIA
  3. NEXIUM [Concomitant]
     Indication: GASTROOESOPHAGEAL REFLUX DISEASE

REACTIONS (4)
  - DYSPEPSIA [None]
  - INSOMNIA [None]
  - DRUG INEFFECTIVE [None]
  - HICCUPS [None]
